FAERS Safety Report 4363879-8 (Version None)
Quarter: 2004Q2

REPORT INFORMATION
  Report Type: 
  Country: None (occurrence: None)
  Receive Date: 20040519
  Receipt Date: 20040507
  Transmission Date: 20050107
  Serious: No
  Sender: FDA-Public Use
  Company Number: 2004UW09647

PATIENT
  Sex: Female

DRUGS (1)
  1. NEXIUM [Suspect]
     Dates: start: 20040401

REACTIONS (7)
  - ANOREXIA [None]
  - CONDITION AGGRAVATED [None]
  - CONTUSION [None]
  - DIZZINESS [None]
  - FAECES DISCOLOURED [None]
  - MIGRAINE [None]
  - WEIGHT DECREASED [None]
